FAERS Safety Report 6277492-9 (Version None)
Quarter: 2009Q2

REPORT INFORMATION
  Report Type: 
  Country: None (occurrence: None)
  Receive Date: 20090605
  Receipt Date: 20090605
  Transmission Date: 20091009
  Serious: Yes (Other)
  Sender: FDA-Public Use
  Company Number: None

PATIENT
  Age: 40 Year
  Sex: Male
  Weight: 77.1115 kg

DRUGS (2)
  1. CREST PRO-HEALTH ORAL RINCE PROCTOR + GAMBLE [Suspect]
     Indication: DENTAL DISORDER PROPHYLAXIS
     Dosage: ~2 OZ. TWICE DAILY PO
     Route: 048
     Dates: start: 20090528, end: 20090604
  2. CREST PRO-HEALTH ORAL RINCE PROCTOR + GAMBLE [Suspect]
     Indication: GINGIVITIS
     Dosage: ~2 OZ. TWICE DAILY PO
     Route: 048
     Dates: start: 20090528, end: 20090604

REACTIONS (1)
  - HYPOGEUSIA [None]
